FAERS Safety Report 7162899-8 (Version None)
Quarter: 2010Q4

REPORT INFORMATION
  Report Type: 
  Country: None (occurrence: None)
  Receive Date: 20101215
  Receipt Date: 20100120
  Transmission Date: 20110411
  Serious: Yes (Other)
  Sender: FDA-Public Use
  Company Number: US-PFIZER INC-2010008606

PATIENT
  Age: 60 Year
  Sex: Female

DRUGS (2)
  1. LYRICA [Suspect]
     Dosage: 15 CAPSULES
     Dates: start: 20091101
  2. AVONEX [Suspect]
     Indication: MULTIPLE SCLEROSIS
     Dosage: 30 UG, WEEKLY
     Route: 030
     Dates: start: 20070101, end: 20091101

REACTIONS (10)
  - APATHY [None]
  - APHASIA [None]
  - CYSTITIS [None]
  - DEPRESSION [None]
  - H1N1 INFLUENZA [None]
  - MEMORY IMPAIRMENT [None]
  - MENTAL IMPAIRMENT [None]
  - PANIC ATTACK [None]
  - PNEUMONIA [None]
  - SUICIDE ATTEMPT [None]
